FAERS Safety Report 4335858-8 (Version None)
Quarter: 2004Q2

REPORT INFORMATION
  Report Type: 
  Country: None (occurrence: None)
  Receive Date: 20040406
  Receipt Date: 20040325
  Transmission Date: 20050107
  Serious: Yes (Other)
  Sender: FDA-Public Use
  Company Number: 2004021639

PATIENT
  Age: 47 Year
  Sex: Male

DRUGS (5)
  1. NEURONTIN [Suspect]
     Indication: ILL-DEFINED DISORDER
     Dates: start: 20031201
  2. ALPRAZOLAM [Concomitant]
  3. CARISOPRODOL [Concomitant]
  4. CLONAZEPAM [Concomitant]
  5. HYDROCODONE (HYDROCODONE) [Concomitant]

REACTIONS (1)
  - DRUG DEPENDENCE [None]
